FAERS Safety Report 13101126 (Version 1)
Quarter: 2017Q1

REPORT INFORMATION
  Report Type: Spontaneous
  Country: DE (occurrence: DE)
  Receive Date: 20170110
  Receipt Date: 20170110
  Transmission Date: 20170428
  Serious: Yes (Life-Threatening, Hospitalization)
  Sender: FDA-Public Use
  Company Number: DE-PFIZER INC-2017006769

PATIENT
  Age: 17 Year
  Sex: Male
  Weight: 60 kg

DRUGS (5)
  1. GADOVIST [Suspect]
     Active Substance: GADOBUTROL
     Indication: NUCLEAR MAGNETIC RESONANCE IMAGING
     Route: 042
  2. ENALAPRIL [Suspect]
     Active Substance: ENALAPRIL
     Indication: HYPERTENSION
     Dosage: ^DOSAGE UNKNOWN^
     Route: 048
  3. AMLODIPINE BESILATE [Suspect]
     Active Substance: AMLODIPINE BESYLATE
     Indication: HYPERTENSION
     Dosage: ^DOSAGE UNKNOWN^
     Route: 048
  4. CICLOSPORIN A [Concomitant]
     Active Substance: CYCLOSPORINE
  5. MYCOPHENOLATMOFETIL [Concomitant]

REACTIONS (13)
  - Hypotension [Unknown]
  - Leukocytosis [Unknown]
  - Blood creatinine increased [Unknown]
  - Cardiogenic shock [Unknown]
  - Dizziness [Unknown]
  - Nausea [Unknown]
  - Overdose [Unknown]
  - Left ventricular failure [Unknown]
  - Paraesthesia [Unknown]
  - Acute respiratory failure [Unknown]
  - Chest pain [Unknown]
  - Neck pain [Unknown]
  - Haemorrhagic anaemia [Unknown]

NARRATIVE: CASE EVENT DATE: 20160303
